FAERS Safety Report 9331164 (Version 1)
Quarter: 2013Q2

REPORT INFORMATION
  Report Type: Spontaneous
  Country: TR (occurrence: TR)
  Receive Date: 20130605
  Receipt Date: 20130605
  Transmission Date: 20140414
  Serious: Yes (Hospitalization)
  Sender: FDA-Public Use
  Company Number: PHHY2013TR052864

PATIENT
  Age: 31 Year
  Sex: Female

DRUGS (1)
  1. VALPROIC ACID [Suspect]
     Dosage: INGESTED UNKNOWN NUMBER OF DRUG

REACTIONS (11)
  - Loss of consciousness [Recovered/Resolved]
  - Hypernatraemia [Recovered/Resolved]
  - Blood pressure inadequately controlled [Recovered/Resolved]
  - Metabolic acidosis [Recovered/Resolved]
  - Ammonia increased [Recovered/Resolved]
  - Haemoglobin decreased [Recovered/Resolved]
  - Platelet count decreased [Recovered/Resolved]
  - Disorientation [Recovered/Resolved]
  - Toxicity to various agents [Recovered/Resolved]
  - Aggression [Recovered/Resolved]
  - Agitation [Recovered/Resolved]
